FAERS Safety Report 24177219 (Version 1)
Quarter: 2024Q3

REPORT INFORMATION
  Report Type: Other
  Country: CN (occurrence: CN)
  Receive Date: 20240806
  Receipt Date: 20240806
  Transmission Date: 20241016
  Serious: Yes (Death, Hospitalization, Other)
  Sender: BIONPHARMA
  Company Number: CN-Bion-013592

PATIENT
  Age: 71 Year
  Sex: Female

DRUGS (2)
  1. DEXAMETHASONE [Suspect]
     Active Substance: DEXAMETHASONE
     Indication: Still^s disease
  2. METHYLPREDNISOLONE [Concomitant]
     Active Substance: METHYLPREDNISOLONE
     Indication: Still^s disease
     Dosage: HIGH DOSE

REACTIONS (7)
  - Nocardiosis [Fatal]
  - Empyema [Fatal]
  - Pneumocystis jirovecii pneumonia [Fatal]
  - Cytomegalovirus infection [Fatal]
  - Pneumonia klebsiella [Fatal]
  - Epstein-Barr virus infection [Fatal]
  - Candida infection [Fatal]
